FAERS Safety Report 8588254-1 (Version None)
Quarter: 2012Q3

REPORT INFORMATION
  Report Type: 
  Country: None (occurrence: None)
  Receive Date: 20120813
  Receipt Date: 20120801
  Transmission Date: 20120928
  Serious: Yes (Hospitalization)
  Sender: FDA-Public Use
  Company Number: US-BAYER-2012-014290

PATIENT
  Age: 34 Year
  Sex: Female
  Weight: 94 kg

DRUGS (7)
  1. YASMIN [Suspect]
     Dosage: UNK
     Dates: start: 20090501, end: 20090601
  2. VICODIN [Concomitant]
  3. MULTI-VITAMIN [Concomitant]
  4. SYNTHROID [Concomitant]
     Indication: HYPOTHYROIDISM
     Dosage: 100 ?G, ONCE DAILY
     Route: 048
  5. MULTI-VITAMINS [Concomitant]
     Indication: POSTPARTUM DISORDER
     Dosage: 1 TABLET DAILY
     Route: 048
  6. YAZ [Suspect]
     Dosage: UNK
     Dates: start: 20090501, end: 20090601
  7. IBUPROFEN [Concomitant]
     Indication: PAIN IN EXTREMITY

REACTIONS (5)
  - THROMBOSIS [None]
  - HYPOAESTHESIA [None]
  - SWELLING [None]
  - DEEP VEIN THROMBOSIS [None]
  - PAIN [None]
